FAERS Safety Report 9100719 (Version 3)
Quarter: 2013Q2

REPORT INFORMATION
  Report Type: Spontaneous
  Country: US (occurrence: US)
  Receive Date: 20130215
  Receipt Date: 20130430
  Transmission Date: 20140414
  Serious: Yes (Other)
  Sender: FDA-Public Use
  Company Number: US-PFIZER INC-2013055466

PATIENT
  Age: 88 Year
  Sex: Female

DRUGS (6)
  1. PREPARATION H HEMORRHOIDAL SUPPOSITORIES [Suspect]
     Dosage: UNK
  2. ANUSOL PLUS [Suspect]
     Dosage: UNK, AS NEEDED (BID PRN)
     Route: 054
  3. TOPROL [Concomitant]
     Dosage: 12.5 MG, 2X/DAY
  4. ASA [Concomitant]
     Dosage: 81 MG, 2X/WEEK
  5. DIOVAN [Concomitant]
     Dosage: 0.25 DF, 1X/DAY (160MG 1/4TH TAB DAILY)
  6. LEVOTHYROXINE [Concomitant]
     Dosage: 75 UG, 1X/DAY

REACTIONS (2)
  - Circumstance or information capable of leading to medication error [Unknown]
  - Rectal haemorrhage [Recovered/Resolved]
